FAERS Safety Report 6144079-8 (Version None)
Quarter: 2009Q2

REPORT INFORMATION
  Report Type: 
  Country: None (occurrence: None)
  Receive Date: 20090406
  Receipt Date: 20090325
  Transmission Date: 20091009
  Serious: Yes (Other)
  Sender: FDA-Public Use
  Company Number: US-BIOGENIDEC-2008BI019795

PATIENT
  Age: 69 Year
  Sex: Female

DRUGS (1)
  1. TYSABRI [Suspect]
     Indication: MULTIPLE SCLEROSIS
     Route: 042
     Dates: start: 20060919

REACTIONS (6)
  - ACTINIC KERATOSIS [None]
  - MUSCULAR WEAKNESS [None]
  - POOR QUALITY SLEEP [None]
  - POSTOPERATIVE WOUND INFECTION [None]
  - PURPURA [None]
  - SKIN CANCER [None]
